FAERS Safety Report 23974935 (Version 1)
Quarter: 2024Q2

REPORT INFORMATION
  Report Type: Spontaneous
  Country: US (occurrence: US)
  Receive Date: 20240614
  Receipt Date: 20240614
  Transmission Date: 20240716
  Serious: Yes (Hospitalization, Other)
  Sender: FDA-Public Use
  Company Number: US-CADILA HEALTHCARE LIMITED-US-ZYDUS-108045

PATIENT

DRUGS (5)
  1. GABAPENTIN [Interacting]
     Active Substance: GABAPENTIN
     Indication: Neuralgia
     Dosage: UNK
     Route: 065
  2. MIDODRINE HYDROCHLORIDE [Interacting]
     Active Substance: MIDODRINE HYDROCHLORIDE
     Indication: Hepatorenal syndrome
     Dosage: 10 MILLIGRAM, TID
     Route: 048
  3. OCTREOTIDE [Suspect]
     Active Substance: OCTREOTIDE\OCTREOTIDE ACETATE
     Indication: Hepatorenal syndrome
     Dosage: 100 MICROGRAM, TID
     Route: 058
  4. ASPIRIN [Concomitant]
     Active Substance: ASPIRIN
     Indication: Product used for unknown indication
     Dosage: UNK
     Route: 065
  5. ALBUMIN HUMAN [Concomitant]
     Active Substance: ALBUMIN HUMAN
     Indication: Hepatorenal syndrome
     Dosage: 25 GRAM, BID
     Route: 042

REACTIONS (4)
  - Acute kidney injury [Unknown]
  - Urinary retention [Unknown]
  - Drug interaction [Unknown]
  - Drug ineffective [Unknown]
